FAERS Safety Report 8186517-5 (Version None)
Quarter: 2012Q1

REPORT INFORMATION
  Report Type: 
  Country: None (occurrence: None)
  Receive Date: 20120306
  Receipt Date: 20120220
  Transmission Date: 20120608
  Serious: No
  Sender: FDA-Public Use
  Company Number: US-ENDO PHARMACEUTICALS INC.-OPER20120121

PATIENT
  Sex: Male
  Weight: 124.85 kg

DRUGS (1)
  1. OPANA ER [Suspect]
     Indication: PAIN
     Route: 048
     Dates: end: 20120207

REACTIONS (3)
  - DEPRESSED MOOD [None]
  - INTENTIONAL DRUG MISUSE [None]
  - PAIN [None]
